FAERS Safety Report 8005815-9 (Version None)
Quarter: 2011Q4

REPORT INFORMATION
  Report Type: 
  Country: None (occurrence: None)
  Receive Date: 20111223
  Receipt Date: 20111219
  Transmission Date: 20120403
  Serious: Yes (Hospitalization, Congenital Anomaly, Other)
  Sender: FDA-Public Use
  Company Number: US-PFIZER INC-2011159902

PATIENT
  Sex: Male
  Weight: 1 kg

DRUGS (6)
  1. INSULIN [Concomitant]
     Dosage: UNK,
     Route: 064
  2. EFFEXOR [Suspect]
     Dosage: UNK,
     Route: 064
  3. PENICILLIN G [Concomitant]
     Dosage: UNK
     Route: 064
  4. ZOLOFT [Suspect]
     Indication: DEPRESSION
     Dosage: UNK,
     Route: 064
  5. MULTI-VITAMINS [Concomitant]
     Dosage: UNK,
     Route: 064
  6. BETAMETHASONE [Concomitant]
     Dosage: UNK
     Route: 064

REACTIONS (32)
  - CARDIAC FAILURE CONGESTIVE [None]
  - TRICUSPID VALVE INCOMPETENCE [None]
  - TRICUSPID VALVE STENOSIS [None]
  - CRYPTORCHISM [None]
  - BRONCHOPULMONARY DYSPLASIA [None]
  - HYDRONEPHROSIS [None]
  - UMBILICAL HERNIA [None]
  - VENTRICULAR HYPERTROPHY [None]
  - JAUNDICE [None]
  - CONGENITAL URINARY TRACT OBSTRUCTION [None]
  - ANAEMIA NEONATAL [None]
  - ATRIAL SEPTAL DEFECT [None]
  - INGUINAL HERNIA [None]
  - CARDIOMEGALY [None]
  - VENTRICULAR SEPTAL DEFECT [None]
  - GASTROOESOPHAGEAL REFLUX DISEASE [None]
  - COORDINATION ABNORMAL [None]
  - MATERNAL EXPOSURE TIMING UNSPECIFIED [None]
  - HEMIVERTEBRA [None]
  - FEEDING DISORDER NEONATAL [None]
  - CONGENITAL PULMONARY ARTERY ANOMALY [None]
  - MITRAL VALVE INCOMPETENCE [None]
  - PLEURAL EFFUSION [None]
  - ACUTE RESPIRATORY FAILURE [None]
  - AORTIC VALVE INCOMPETENCE [None]
  - RIB DEFORMITY [None]
  - PULMONARY VALVE INCOMPETENCE [None]
  - PULMONARY VALVE STENOSIS [None]
  - FALLOT'S TETRALOGY [None]
  - PATENT DUCTUS ARTERIOSUS [None]
  - ELECTROLYTE IMBALANCE [None]
  - HYPONATRAEMIA [None]
